FAERS Safety Report 7597251-4 (Version None)
Quarter: 2011Q3

REPORT INFORMATION
  Report Type: 
  Country: None (occurrence: None)
  Receive Date: 20110708
  Receipt Date: 20101221
  Transmission Date: 20111222
  Serious: No
  Sender: FDA-Public Use
  Company Number: US-GLAXOSMITHKLINE-A0901001A

PATIENT
  Age: 6 Year
  Sex: Male

DRUGS (3)
  1. ALBUTEROL SULFATE AUTOHALER [Concomitant]
  2. AUGMENTIN '125' [Concomitant]
  3. FLOVENT [Suspect]
     Indication: ASTHMA
     Dosage: 2PUFF TWICE PER DAY
     Route: 055
     Dates: start: 20101210, end: 20101220

REACTIONS (4)
  - FLUSHING [None]
  - ABDOMINAL PAIN UPPER [None]
  - PSYCHOMOTOR HYPERACTIVITY [None]
  - BRONCHITIS [None]
